FAERS Safety Report 8550484-2 (Version None)
Quarter: 2012Q3

REPORT INFORMATION
  Report Type: 
  Country: None (occurrence: None)
  Receive Date: 20120730
  Receipt Date: 20120716
  Transmission Date: 20120928
  Serious: Yes (Hospitalization, Other)
  Sender: FDA-Public Use
  Company Number: US-ELI_LILLY_AND_COMPANY-US201206002949

PATIENT
  Sex: Female

DRUGS (13)
  1. ALBUTEROL [Concomitant]
  2. IMITREX [Concomitant]
  3. CYMBALTA [Suspect]
     Dosage: 60 MG, UNK
  4. LEVOTHYROXINE SODIUM [Concomitant]
  5. XANAX [Concomitant]
  6. LISINOPRIL [Concomitant]
  7. PROAIR HFA [Concomitant]
  8. PLAQUENIL [Concomitant]
  9. CYMBALTA [Suspect]
     Indication: DEPRESSION
     Dosage: 30 MG, UNK
  10. CYMBALTA [Suspect]
     Dosage: 120 MG, QD
     Dates: end: 20120101
  11. SOMA [Concomitant]
  12. VICODIN [Concomitant]
  13. ESTRATEST [Concomitant]

REACTIONS (12)
  - MUSCULAR WEAKNESS [None]
  - SUICIDAL IDEATION [None]
  - NEUROPATHY PERIPHERAL [None]
  - DEPRESSION [None]
  - PANIC ATTACK [None]
  - BLOOD PRESSURE INCREASED [None]
  - ANXIETY [None]
  - VISUAL ACUITY REDUCED [None]
  - MOVEMENT DISORDER [None]
  - CONVULSION [None]
  - PAIN [None]
  - RAYNAUD'S PHENOMENON [None]
